FAERS Safety Report 5164102-7 (Version None)
Quarter: 2006Q4

REPORT INFORMATION
  Report Type: 
  Country: None (occurrence: None)
  Receive Date: 20061124
  Receipt Date: 20061109
  Transmission Date: 20070319
  Serious: Yes (Death)
  Sender: FDA-Public Use
  Company Number: 2006140937

PATIENT
  Age: 58 Year

DRUGS (3)
  1. DIPHENHYDRAMINE HCL [Suspect]
     Indication: SUICIDE ATTEMPT
  2. CHARCOAL, ACTIVATED (CHARCOAL, ACTIVATED) [Suspect]
     Indication: SUICIDE ATTEMPT
  3. ARIPIPRAZOLE (ARIPIPRAZOLE) [Suspect]
     Indication: SUICIDE ATTEMPT

REACTIONS (1)
  - COMPLETED SUICIDE [None]
